FAERS Safety Report 6937780-7 (Version None)
Quarter: 2010Q3

REPORT INFORMATION
  Report Type: 
  Country: None (occurrence: None)
  Receive Date: 20100823
  Receipt Date: 20100813
  Transmission Date: 20110219
  Serious: Yes (Hospitalization)
  Sender: FDA-Public Use
  Company Number: JP-BRISTOL-MYERS SQUIBB COMPANY-15246770

PATIENT
  Age: 61 Year
  Sex: Male

DRUGS (2)
  1. ABILIFY [Suspect]
     Indication: BIPOLAR I DISORDER
     Dosage: 15MG: UNK DATE 24MG/D: UNK-10AUG10 15MG: 11AUG10-UNK
     Route: 048
  2. LITHIUM CARBONATE [Concomitant]
     Indication: BIPOLAR I DISORDER
     Dosage: TAB
     Dates: start: 20100701, end: 20100101

REACTIONS (2)
  - DYSTONIA [None]
  - PNEUMONIA [None]
